FAERS Safety Report 20411279 (Version 2)
Quarter: 2022Q2

REPORT INFORMATION
  Report Type: Report from Study
  Country: US (occurrence: US)
  Receive Date: 20220201
  Receipt Date: 20220411
  Transmission Date: 20220721
  Serious: Yes (Hospitalization, Other)
  Sender: FDA-Public Use
  Company Number: US-SA-2017SA240738

PATIENT
  Age: 80 Year
  Sex: Female
  Weight: 67 kg

DRUGS (3)
  1. TERIFLUNOMIDE [Suspect]
     Active Substance: TERIFLUNOMIDE
     Indication: Multiple sclerosis
     Dosage: 14 MG,QD
     Route: 048
     Dates: start: 20171101
  2. OMEPRAZOLE [Concomitant]
     Active Substance: OMEPRAZOLE
  3. RANITIDINE [Concomitant]
     Active Substance: RANITIDINE
     Dosage: 2 DF, QD

REACTIONS (18)
  - Cerebrovascular accident [Not Recovered/Not Resolved]
  - Fall [Unknown]
  - Limb injury [Unknown]
  - Pain in extremity [Unknown]
  - Hypertension [Unknown]
  - Fall [Recovered/Resolved]
  - Head injury [Recovered/Resolved]
  - Back injury [Recovered/Resolved]
  - Balance disorder [Recovered/Resolved]
  - Dysarthria [Unknown]
  - Nervousness [Unknown]
  - Anxiety [Not Recovered/Not Resolved]
  - Blood pressure abnormal [Unknown]
  - Bladder disorder [Unknown]
  - Condition aggravated [Unknown]
  - Cough [Unknown]
  - Mobility decreased [Recovering/Resolving]
  - Influenza [Unknown]

NARRATIVE: CASE EVENT DATE: 20170101
